FAERS Safety Report 6393069-9 (Version None)
Quarter: 2009Q4

REPORT INFORMATION
  Report Type: 
  Country: None (occurrence: None)
  Receive Date: 20091008
  Receipt Date: 20090910
  Transmission Date: 20100525
  Serious: No
  Sender: FDA-Public Use
  Company Number: US-BAYER-200914412BCC

PATIENT
  Age: 65 Year
  Sex: Male
  Weight: 132 kg

DRUGS (3)
  1. ALEVE (CAPLET) [Suspect]
     Indication: BACK PAIN
     Dosage: TOTAL DAILY DOSE: 440 MG  UNIT DOSE: 220 MG
     Route: 048
     Dates: start: 20090908
  2. LISINOPRIL [Concomitant]
     Route: 065
  3. METOPROL [Concomitant]
     Route: 065

REACTIONS (1)
  - BACK PAIN [None]
